FAERS Safety Report 7110187-8 (Version None)
Quarter: 2010Q4

REPORT INFORMATION
  Report Type: 
  Country: None (occurrence: None)
  Receive Date: 20101116
  Receipt Date: 20101116
  Transmission Date: 20110411
  Serious: No
  Sender: FDA-Public Use
  Company Number: None

PATIENT
  Age: 43 Year
  Sex: Female
  Weight: 75.2971 kg

DRUGS (1)
  1. MULTIHANCE [Suspect]
     Dosage: ONE TIME ONLY
     Dates: start: 20100910, end: 20100910

REACTIONS (3)
  - BLOOD PRESSURE INCREASED [None]
  - HEART RATE INCREASED [None]
  - LIP SWELLING [None]
